FAERS Safety Report 11650794 (Version 4)
Quarter: 2016Q1

REPORT INFORMATION
  Report Type: Report from Study
  Country: US (occurrence: US)
  Receive Date: 20151021
  Receipt Date: 20160113
  Transmission Date: 20160525
  Serious: Yes (Other)
  Sender: FDA-Public Use
  Company Number: PHHO2015US014599

PATIENT
  Age: 45 Year
  Sex: Female
  Weight: 63.6 kg

DRUGS (51)
  1. THIOTEPA. [Suspect]
     Active Substance: THIOTEPA
     Indication: CHEMOTHERAPY
     Dosage: 5 UG/KG, QD
     Route: 042
     Dates: start: 20150919
  2. SODIUM CHLORIDE. [Concomitant]
     Active Substance: SODIUM CHLORIDE
     Indication: NASAL DISCOMFORT
     Dosage: 1 SPRAY Q2H PRN
     Route: 065
     Dates: start: 20151005
  3. CODEIN [Concomitant]
     Active Substance: CODEINE
     Indication: MUCOSAL INFLAMMATION
  4. CEFEPIME [Concomitant]
     Active Substance: CEFEPIME HYDROCHLORIDE
     Indication: NEUTROPENIC COLITIS
     Dosage: UNK
     Route: 065
     Dates: end: 20151005
  5. MYCOPHENOLATE [Concomitant]
     Active Substance: MYCOPHENOLIC ACID
     Indication: PROPHYLAXIS
     Dosage: 1000 MG, Q8H
     Route: 042
     Dates: start: 20150928
  6. POTASSIUM CHLORIDE. [Concomitant]
     Active Substance: POTASSIUM CHLORIDE
     Indication: MINERAL SUPPLEMENTATION
     Dosage: 40 (20-40) MEQ, PRN
     Route: 042
     Dates: start: 20150926
  7. TACROLIMUS. [Concomitant]
     Active Substance: TACROLIMUS
     Indication: PROPHYLAXIS
     Dosage: 0.04 MG/H, UNK
     Route: 042
     Dates: start: 20150928
  8. ACYCLOVIR. [Concomitant]
     Active Substance: ACYCLOVIR
     Dosage: 300 MG, Q12H
     Route: 042
     Dates: start: 20151002
  9. GUAIFENESIN. [Concomitant]
     Active Substance: GUAIFENESIN
     Indication: COUGH
     Dosage: 600 MG, BID PRN
     Route: 065
     Dates: start: 20150922
  10. LORAZEPAM. [Concomitant]
     Active Substance: LORAZEPAM
     Indication: NAUSEA
     Dosage: 1 MG, Q4H PRN
     Route: 042
     Dates: start: 20150918
  11. FILGRASTIM [Concomitant]
     Active Substance: FILGRASTIM
     Indication: PRODUCT USED FOR UNKNOWN INDICATION
     Dosage: 5 UG/KG, QD
     Route: 042
     Dates: start: 20151001
  12. VANCOMYCIN [Concomitant]
     Active Substance: VANCOMYCIN
     Indication: FEBRILE NEUTROPENIA
     Dosage: 1.5 NG, ONCE/SINGLE
     Route: 042
     Dates: start: 20151001, end: 20151001
  13. VANCOMYCIN [Concomitant]
     Active Substance: VANCOMYCIN
     Dosage: 1 G, Q12H
     Route: 042
     Dates: start: 20151002, end: 20151004
  14. VANCOMYCIN [Concomitant]
     Active Substance: VANCOMYCIN
     Dosage: 0.75 G, Q12H
     Route: 042
     Dates: start: 20151004, end: 20151019
  15. AMBISOME [Concomitant]
     Active Substance: AMPHOTERICIN B
     Indication: FUNGAL INFECTION
     Dosage: UNK
     Route: 065
     Dates: end: 20151019
  16. FLUTICASONE [Concomitant]
     Active Substance: FLUTICASONE\FLUTICASONE PROPIONATE
     Indication: CHRONIC OBSTRUCTIVE PULMONARY DISEASE
     Dosage: 4 DF, BID
     Route: 055
     Dates: start: 20150930
  17. PROCHLORPERAZINE. [Concomitant]
     Active Substance: PROCHLORPERAZINE
     Indication: PROPHYLAXIS OF NAUSEA AND VOMITING
     Dosage: 10 MG, Q6H PRN
     Route: 042
  18. LOPERAMIDE [Concomitant]
     Active Substance: LOPERAMIDE
     Indication: DIARRHOEA
     Dosage: 2 MG, QID PRN
     Route: 065
     Dates: start: 20150919
  19. OXYCODONE [Concomitant]
     Active Substance: OXYCODONE
     Indication: PAIN
     Dosage: 10 MG, Q6H PRN
     Route: 048
     Dates: start: 20151004
  20. POSACONAZOLE [Concomitant]
     Active Substance: POSACONAZOLE
     Indication: PRODUCT USED FOR UNKNOWN INDICATION
     Route: 042
  21. MEMANTINE. [Concomitant]
     Active Substance: MEMANTINE
     Indication: PRODUCT USED FOR UNKNOWN INDICATION
     Dosage: 10 MG, QD
     Route: 048
  22. CIPROFLOXACIN. [Concomitant]
     Active Substance: CIPROFLOXACIN
     Indication: ANTIBIOTIC PROPHYLAXIS
     Dosage: 500 MG, Q12H
     Route: 048
     Dates: start: 20150919
  23. SODIUM CHLORIDE. [Concomitant]
     Active Substance: SODIUM CHLORIDE
     Indication: FLUID REPLACEMENT
     Dosage: 5 ML, QID
     Route: 048
     Dates: start: 20150918, end: 20151005
  24. FUROSEMIDE. [Concomitant]
     Active Substance: FUROSEMIDE
     Indication: FLUID OVERLOAD
     Dosage: 40 ML, PRN AS NEEDED
     Route: 042
     Dates: start: 20151001
  25. ACETAMINOPHEN. [Concomitant]
     Active Substance: ACETAMINOPHEN
     Indication: PREMEDICATION
     Dosage: 650 MG, PRN
     Route: 048
     Dates: start: 20150919
  26. ALBUTEROL. [Concomitant]
     Active Substance: ALBUTEROL
     Indication: COUGH
     Dosage: 2.5 MG, QID
     Route: 030
     Dates: start: 20150925
  27. BENZONATATE. [Concomitant]
     Active Substance: BENZONATATE
     Indication: COUGH
     Dosage: 100 MG, Q8H PRN
     Route: 065
     Dates: start: 20150925
  28. ONDANSETRON [Concomitant]
     Active Substance: ONDANSETRON
     Indication: NAUSEA
     Dosage: 8 MG, Q8H
     Route: 042
     Dates: start: 20150921
  29. BACTRIM DS [Concomitant]
     Active Substance: SULFAMETHOXAZOLE\TRIMETHOPRIM
     Indication: ANTIFUNGAL PROPHYLAXIS
     Dosage: 1 DF, Q12H
     Route: 048
     Dates: start: 20150919
  30. DIPHENHYDRAMINE. [Concomitant]
     Active Substance: DIPHENHYDRAMINE
     Indication: PREMEDICATION
     Dosage: 20 MG, PRN
     Route: 042
     Dates: start: 20150919
  31. DIPHENHYDRAMINE. [Concomitant]
     Active Substance: DIPHENHYDRAMINE
     Indication: MUCOSAL INFLAMMATION
  32. SOLU-MEDROL [Concomitant]
     Active Substance: METHYLPREDNISOLONE SODIUM SUCCINATE
     Indication: PYREXIA
     Dosage: 2 MG/KG, UNK
     Route: 065
     Dates: start: 20151013
  33. VORICONAZOLE. [Concomitant]
     Active Substance: VORICONAZOLE
     Indication: ANTIFUNGAL PROPHYLAXIS
     Dosage: 20 MG, Q12H
     Route: 042
     Dates: start: 20151002, end: 20151019
  34. AZTREONAM. [Concomitant]
     Active Substance: AZTREONAM
     Indication: PRODUCT USED FOR UNKNOWN INDICATION
     Route: 065
  35. FLAGYL [Concomitant]
     Active Substance: METRONIDAZOLE\METRONIDAZOLE HYDROCHLORIDE
     Indication: PRODUCT USED FOR UNKNOWN INDICATION
     Route: 065
  36. ACYCLOVIR. [Concomitant]
     Active Substance: ACYCLOVIR
     Indication: ANTIVIRAL PROPHYLAXIS
     Dosage: 400 MG, Q12H
     Route: 048
     Dates: start: 20150919
  37. SODIUM CHLORIDE. [Concomitant]
     Active Substance: SODIUM CHLORIDE
     Indication: MUCOSAL INFLAMMATION
  38. CLINDAMYCIN [Concomitant]
     Active Substance: CLINDAMYCIN\CLINDAMYCIN PHOSPHATE
     Indication: FOLLICULITIS
     Dosage: BID
     Route: 061
     Dates: start: 20150929
  39. GUAIFENESIN. [Concomitant]
     Active Substance: GUAIFENESIN
     Indication: PULMONARY CONGESTION
  40. LORAZEPAM. [Concomitant]
     Active Substance: LORAZEPAM
     Indication: VOMITING
  41. METFORMIN [Concomitant]
     Active Substance: METFORMIN HYDROCHLORIDE
     Indication: PAIN
     Dosage: 10 MG, Q4H PRN
     Route: 065
     Dates: start: 20150930
  42. CIPRO [Concomitant]
     Active Substance: CIPROFLOXACIN HYDROCHLORIDE
     Indication: PRODUCT USED FOR UNKNOWN INDICATION
     Dosage: UNK
     Route: 065
  43. FLUDARABINE [Suspect]
     Active Substance: FLUDARABINE PHOSPHATE
     Indication: CHEMOTHERAPY
     Dosage: 70 MG, QD (Q24H)
     Route: 042
     Dates: start: 20150925
  44. LACOSAMIDE [Concomitant]
     Active Substance: LACOSAMIDE
     Indication: PROPHYLAXIS
     Dosage: 250 MG, QD (100 MG Q AM, 150 MG Q PM)
     Route: 042
     Dates: start: 20151002
  45. CODEIN [Concomitant]
     Active Substance: CODEINE
     Indication: COUGH
     Dosage: 15 MG, Q6H PRN
     Route: 048
     Dates: start: 20150928
  46. MAGNESIUM SULFATE. [Concomitant]
     Active Substance: MAGNESIUM SULFATE
     Indication: MINERAL SUPPLEMENTATION
     Dosage: 4 MG, PRN
     Route: 042
     Dates: start: 20150919
  47. MEROPENEM. [Concomitant]
     Active Substance: MEROPENEM
     Indication: FEBRILE NEUTROPENIA
     Dosage: 500 MG, Q6H
     Route: 042
     Dates: start: 20151005
  48. CSJ148 [Suspect]
     Active Substance: INVESTIGATIONAL PRODUCT
     Indication: ANTIVIRAL PROPHYLAXIS
     Dosage: COHORT 2 REGIMEN
     Route: 042
     Dates: start: 20150918
  49. URSODIOL. [Concomitant]
     Active Substance: URSODIOL
     Indication: THROMBOSIS PROPHYLAXIS
     Dosage: 300 MG, BID
     Route: 048
     Dates: start: 20150930
  50. DIPHENHYDRAMINE. [Concomitant]
     Active Substance: DIPHENHYDRAMINE
     Indication: COUGH
     Dosage: 25 MG, PRN
     Route: 042
     Dates: start: 20150928
  51. SOLU-MEDROL [Concomitant]
     Active Substance: METHYLPREDNISOLONE SODIUM SUCCINATE
     Dosage: 60 MG, QD
     Route: 065
     Dates: start: 20151016

REACTIONS (4)
  - Abdominal pain upper [Recovered/Resolved]
  - Pleural effusion [Recovered/Resolved]
  - Aspartate aminotransferase increased [Recovered/Resolved]
  - Alanine aminotransferase increased [Recovered/Resolved]

NARRATIVE: CASE EVENT DATE: 20150921
